FAERS Safety Report 5593435-5 (Version None)
Quarter: 2008Q1

REPORT INFORMATION
  Report Type: 
  Country: None (occurrence: None)
  Receive Date: 20080116
  Receipt Date: 20080108
  Transmission Date: 20080703
  Serious: Yes (Hospitalization, Other)
  Sender: FDA-Public Use
  Company Number: US-MERCK-0705USA02800

PATIENT
  Age: 59 Year
  Sex: Male

DRUGS (2)
  1. FOSAMAX [Suspect]
     Indication: OSTEOPOROSIS
     Route: 048
     Dates: start: 19910101, end: 20040101
  2. CORTICOSTEROIDS (UNSPECIFIED) [Concomitant]
     Route: 065
     Dates: start: 19910101

REACTIONS (5)
  - ARTHRALGIA [None]
  - ARTHROPATHY [None]
  - OSTEOMYELITIS [None]
  - OSTEONECROSIS [None]
  - RHEUMATOID ARTHRITIS [None]
